FAERS Safety Report 15880231 (Version 1)
Quarter: 2019Q1

REPORT INFORMATION
  Report Type: Spontaneous
  Country: US (occurrence: US)
  Receive Date: 20190104
  Receipt Date: 20190104
  Transmission Date: 20190417
  Serious: No
  Sender: FDA-Public Use
  Company Number: None

PATIENT
  Age: 65 Year
  Sex: Male
  Weight: 88.45 kg

DRUGS (5)
  1. LUPRON [Concomitant]
     Active Substance: LEUPROLIDE ACETATE
  2. XGEVA [Concomitant]
     Active Substance: DENOSUMAB
  3. ZYTIGA [Suspect]
     Active Substance: ABIRATERONE ACETATE
     Indication: PROSTATE CANCER
     Route: 048
     Dates: start: 20180613
  4. TAMSULOSIN [Concomitant]
     Active Substance: TAMSULOSIN
  5. PREDNISONE. [Concomitant]
     Active Substance: PREDNISONE

REACTIONS (2)
  - Rash [None]
  - Rash papular [None]
